FAERS Safety Report 6523611-6 (Version None)
Quarter: 2009Q4

REPORT INFORMATION
  Report Type: 
  Country: None (occurrence: None)
  Receive Date: 20091231
  Receipt Date: 20091224
  Transmission Date: 20100525
  Serious: Yes (Hospitalization)
  Sender: FDA-Public Use
  Company Number: PHHO2009TW16101

PATIENT
  Sex: Male
  Weight: 74 kg

DRUGS (1)
  1. ZOLEDRONATE T29581+SOLINJ+BM [Suspect]
     Indication: PROSTATE CANCER
     Dosage: 4 MG
     Route: 042
     Dates: start: 20080221, end: 20091001

REACTIONS (9)
  - BONE DISORDER [None]
  - EXCESSIVE GRANULATION TISSUE [None]
  - GINGIVAL ABSCESS [None]
  - GINGIVAL PAIN [None]
  - IMPAIRED HEALING [None]
  - OSTEOMYELITIS CHRONIC [None]
  - OSTEONECROSIS [None]
  - PAIN [None]
  - TOOTH EXTRACTION [None]
